FAERS Safety Report 15656522 (Version 1)
Quarter: 2018Q4

REPORT INFORMATION
  Report Type: Report from Study
  Country: TW (occurrence: TW)
  Receive Date: 20181126
  Receipt Date: 20181126
  Transmission Date: 20190205
  Serious: Yes (Other)
  Sender: FDA-Public Use
  Company Number: TW-JNJFOC-20181122485

PATIENT
  Age: 58 Year
  Sex: Male

DRUGS (3)
  1. GENIQUIN [Concomitant]
     Indication: RHEUMATOID ARTHRITIS
     Route: 048
     Dates: start: 20180315, end: 20181011
  2. METHOTREXATE. [Concomitant]
     Active Substance: METHOTREXATE
     Indication: RHEUMATOID ARTHRITIS
     Route: 048
     Dates: start: 20180315, end: 20181011
  3. SIMPONI [Suspect]
     Active Substance: GOLIMUMAB
     Indication: RHEUMATOID ARTHRITIS
     Route: 058
     Dates: start: 20181011

REACTIONS (1)
  - Lymphoma [Unknown]

NARRATIVE: CASE EVENT DATE: 20181030
